FAERS Safety Report 12706026 (Version 3)
Quarter: 2019Q3

REPORT INFORMATION
  Report Type: Spontaneous
  Country: US (occurrence: US)
  Receive Date: 20160901
  Receipt Date: 20190806
  Transmission Date: 20191004
  Serious: No
  Sender: FDA-Public Use
  Company Number: US-JAZZ-2016-US-007854

PATIENT
  Sex: Female

DRUGS (8)
  1. DIPHENHYDRAMINE CITRATE, IBUPROFEN [Concomitant]
     Active Substance: DIPHENHYDRAMINE CITRATE\IBUPROFEN
     Dosage: 200-25 MG CAPUSLE TWO CAPSULE AT BEDTIMEAS NEEDED ONCE A DAY
  2. MODAFINIL. [Concomitant]
     Active Substance: MODAFINIL
  3. MAGNESIUM [Concomitant]
     Active Substance: MAGNESIUM
  4. XYREM [Suspect]
     Active Substance: SODIUM OXYBATE
     Dosage: 3 G, BID
     Route: 048
  5. XYREM [Suspect]
     Active Substance: SODIUM OXYBATE
     Indication: NARCOLEPSY
     Dosage: 3 G, BID
     Route: 048
     Dates: start: 201307, end: 201506
  6. XYREM [Suspect]
     Active Substance: SODIUM OXYBATE
     Dosage: 3.5 G, BID
     Route: 048
     Dates: start: 201506, end: 201511
  7. AZURETTE [Concomitant]
     Active Substance: DESOGESTREL\ETHINYL ESTRADIOL
     Dosage: ONE TABLET ONCE A DAY
  8. FLAXSEED [Concomitant]
     Active Substance: FLAX SEED

REACTIONS (1)
  - Poor quality sleep [Unknown]
